FAERS Safety Report 18093410 (Version 1)
Quarter: 2020Q3

REPORT INFORMATION
  Report Type: Spontaneous
  Country: JP (occurrence: JP)
  Receive Date: 20200730
  Receipt Date: 20200730
  Transmission Date: 20201103
  Serious: Yes (Hospitalization)
  Sender: FDA-Public Use
  Company Number: JP-STRIDES ARCOLAB LIMITED-2020SP008739

PATIENT
  Age: 53 Year
  Sex: Male

DRUGS (5)
  1. TACROLIMUS. [Suspect]
     Active Substance: TACROLIMUS
     Indication: PROPHYLAXIS AGAINST GRAFT VERSUS HOST DISEASE
     Dosage: 1.1 MILLIGRAM PER DAY
     Route: 048
     Dates: start: 201711, end: 201802
  2. METHOTREXATE. [Suspect]
     Active Substance: METHOTREXATE
     Indication: CORD BLOOD TRANSPLANT THERAPY
  3. METHOTREXATE. [Suspect]
     Active Substance: METHOTREXATE
     Indication: BLINDNESS
     Dosage: UNK, FIVE VITREOUS INJECTION TOTAL
     Dates: start: 201805, end: 201807
  4. TACROLIMUS. [Suspect]
     Active Substance: TACROLIMUS
     Indication: CORD BLOOD TRANSPLANT THERAPY
  5. METHOTREXATE. [Suspect]
     Active Substance: METHOTREXATE
     Indication: PROPHYLAXIS AGAINST GRAFT VERSUS HOST DISEASE
     Dosage: 6.2 MILLIGRAM, AT 1, 3, AND 6 DAYS AFTER CBT
     Route: 042
     Dates: start: 201711, end: 2017

REACTIONS (11)
  - Acute hepatic failure [Recovered/Resolved]
  - Hepatitis fulminant [Recovered/Resolved]
  - Decreased appetite [Recovered/Resolved]
  - Liver injury [Recovered/Resolved]
  - Hepatitis B reactivation [Recovered/Resolved]
  - Coma hepatic [Recovered/Resolved]
  - Hepatic atrophy [Recovered/Resolved]
  - Brain oedema [Recovered/Resolved]
  - Off label use [Unknown]
  - Ascites [Recovered/Resolved]
  - Fatigue [Recovered/Resolved]

NARRATIVE: CASE EVENT DATE: 201711
